FAERS Safety Report 9431850 (Version 3)
Quarter: 2015Q3

REPORT INFORMATION
  Report Type: Report from Study
  Country: DE (occurrence: DE)
  Receive Date: 20130731
  Receipt Date: 20150716
  Transmission Date: 20151125
  Serious: Yes (Death)
  Sender: FDA-Public Use
  Company Number: PHHY2013DE077881

PATIENT
  Sex: Female

DRUGS (6)
  1. DELIX [Concomitant]
     Active Substance: RAMIPRIL
     Indication: HYPERTENSION
     Dosage: 10 MG, QD
     Route: 048
  2. VIT B 12 [Concomitant]
     Indication: ANAEMIA VITAMIN B12 DEFICIENCY
     Dosage: 1000 OT, EVERY 4 WEEKS
     Route: 058
  3. BERLTHYROX [Concomitant]
     Indication: THYROIDECTOMY
     Dosage: 100 MG
     Route: 048
     Dates: start: 2007
  4. REMINYL [Concomitant]
     Active Substance: GALANTAMINE
     Indication: DEMENTIA
     Dosage: 16 MG, QD
     Route: 048
  5. CGP 57148B [Suspect]
     Active Substance: IMATINIB MESYLATE
     Indication: GASTROINTESTINAL STROMAL TUMOUR
     Dosage: 400 MG, QD
     Route: 048
     Dates: start: 20101201, end: 20111130
  6. ASPIRIN. [Concomitant]
     Active Substance: ASPIRIN
     Indication: CEREBROVASCULAR ACCIDENT
     Dosage: 100 MG, QD
     Route: 048

REACTIONS (2)
  - Multi-organ failure [Fatal]
  - Cachexia [Fatal]

NARRATIVE: CASE EVENT DATE: 20110621
